FAERS Safety Report 4755589-X (Version None)
Quarter: 2005Q3

REPORT INFORMATION
  Report Type: 
  Country: None (occurrence: None)
  Receive Date: 20050830
  Receipt Date: 20050524
  Transmission Date: 20060218
  Serious: No
  Sender: FDA-Public Use
  Company Number: US-BRISTOL-MYERS SQUIBB COMPANY-12980512

PATIENT
  Age: 79 Year
  Sex: Female
  Weight: 46 kg

DRUGS (8)
  1. ABILIFY [Suspect]
     Dosage: 10 MG THEN DECREASED TO 7.5 MG
     Dates: start: 20050510
  2. PROPANOL [Concomitant]
  3. LOVASTATIN [Concomitant]
  4. ISOSORBIDE [Concomitant]
  5. PLAVIX [Concomitant]
  6. ASPIRIN [Concomitant]
  7. REMINYL [Concomitant]
  8. BETOPTIC DROPS [Concomitant]

REACTIONS (5)
  - ABDOMINAL DISCOMFORT [None]
  - DECREASED APPETITE [None]
  - EYE PAIN [None]
  - HYPOTENSION [None]
  - SOMNOLENCE [None]
